FAERS Safety Report 8997514 (Version 1)
Quarter: 2013Q1

REPORT INFORMATION
  Report Type: Spontaneous
  Country: CN (occurrence: CN)
  Receive Date: 20130104
  Receipt Date: 20130104
  Transmission Date: 20140127
  Serious: Yes (Hospitalization, Other)
  Sender: FDA-Public Use
  Company Number: CN-JNJFOC-20121212468

PATIENT
  Age: 58 Year
  Sex: Male

DRUGS (2)
  1. ITRACONAZOLE [Suspect]
     Indication: SPOROTRICHOSIS
     Route: 048
  2. POTASSIUM IODIDE [Suspect]
     Indication: SPOROTRICHOSIS
     Route: 048

REACTIONS (4)
  - Granuloma [Recovered/Resolved]
  - Squamous cell carcinoma [Recovered/Resolved]
  - Rash [Recovered/Resolved]
  - Drug ineffective [Recovered/Resolved]
